FAERS Safety Report 6085826-3 (Version None)
Quarter: 2009Q1

REPORT INFORMATION
  Report Type: 
  Country: None (occurrence: None)
  Receive Date: 20090220
  Receipt Date: 20090219
  Transmission Date: 20090719
  Serious: Yes (Death)
  Sender: FDA-Public Use
  Company Number: A0769374A

PATIENT
  Age: 46 Year
  Sex: Male

DRUGS (1)
  1. PAXIL [Suspect]
     Route: 065

REACTIONS (1)
  - COMPLETED SUICIDE [None]
